FAERS Safety Report 4464856-9 (Version None)
Quarter: 2004Q4

REPORT INFORMATION
  Report Type: 
  Country: None (occurrence: None)
  Receive Date: 20041004
  Receipt Date: 20031125
  Transmission Date: 20050328
  Serious: Yes (Hospitalization)
  Sender: FDA-Public Use
  Company Number: MCN352838

PATIENT
  Age: 69 Year
  Sex: Female

DRUGS (12)
  1. COREG [Suspect]
     Indication: HYPERTENSION
     Route: 048
     Dates: end: 20031114
  2. PROTONIX [Concomitant]
  3. PREDNISONE [Concomitant]
  4. SPIRONOLACTONE [Concomitant]
  5. NEURONTIN [Concomitant]
  6. ALTACE [Concomitant]
  7. ASPIRIN [Concomitant]
  8. FOSAMAX [Concomitant]
  9. PHENERGAN HCL [Concomitant]
  10. SEREVENT [Concomitant]
  11. COMBIVENT [Concomitant]
  12. MULTI-VITAMIN [Concomitant]

REACTIONS (1)
  - SYNCOPE [None]
